FAERS Safety Report 8351091-7 (Version None)
Quarter: 2012Q2

REPORT INFORMATION
  Report Type: 
  Country: None (occurrence: None)
  Receive Date: 20120510
  Receipt Date: 20120503
  Transmission Date: 20120825
  Serious: Yes (Death, Hospitalization, Other)
  Sender: FDA-Public Use
  Company Number: PHHO2011US03764

PATIENT
  Sex: Male
  Weight: 85.351 kg

DRUGS (11)
  1. ZOMETA [Suspect]
     Dosage: 4 MG, EVERY 12 WK
     Dates: start: 20120103
  2. ZOMETA [Suspect]
     Indication: MULTIPLE MYELOMA
     Dosage: 4 MG, UNK
     Dates: start: 20100303
  3. FOSINOPRIL SODIUM [Concomitant]
     Indication: HYPERTENSION
     Dosage: 40 MG, UNK
     Dates: start: 20030520
  4. AMLODIPINE BESYLATE [Concomitant]
     Indication: HYPERTENSION
     Dosage: 10 MG, UNK
     Dates: start: 20091020
  5. REVLIMID [Concomitant]
     Dosage: UNK
  6. METOPROLOL TARTRATE [Concomitant]
     Indication: HYPERTENSION
     Dosage: 25 MG, QD
  7. DEXAMETHASONE [Suspect]
     Indication: MULTIPLE MYELOMA
     Dosage: 20 MG, ONCE/SINGLE
  8. DOCUSATE [Concomitant]
     Indication: ABNORMAL FAECES
     Dosage: 200 MG, BID
  9. ATENOLOL [Concomitant]
     Indication: HYPERTENSION
     Dosage: 25 MG, UNK
     Dates: start: 19990806
  10. SIMVASTATIN [Concomitant]
     Indication: HYPERCHOLESTEROLAEMIA
     Dosage: 10 MG, UNK
     Dates: start: 20030806
  11. CALCIUM WITH VITAMIN D [Concomitant]
     Indication: VITAMIN SUPPLEMENTATION
     Dosage: 500/150 BID

REACTIONS (5)
  - ATRIAL FIBRILLATION [None]
  - MULTIPLE MYELOMA [None]
  - CONCOMITANT DISEASE PROGRESSION [None]
  - CARDIAC FAILURE CONGESTIVE [None]
  - RENAL FAILURE ACUTE [None]
